FAERS Safety Report 7231543-3 (Version None)
Quarter: 2011Q1

REPORT INFORMATION
  Report Type: 
  Country: None (occurrence: None)
  Receive Date: 20110118
  Receipt Date: 20110117
  Transmission Date: 20110831
  Serious: Yes (Death)
  Sender: FDA-Public Use
  Company Number: GB-ABBOTT-10P-167-0691814-00

PATIENT
  Sex: Male
  Weight: 109 kg

DRUGS (4)
  1. OMEPRAZOLE [Concomitant]
     Indication: PRODUCT USED FOR UNKNOWN INDICATION
     Dosage: LONGSTANDING
  2. HUMIRA [Suspect]
     Indication: PSORIASIS
     Route: 058
     Dates: start: 20090401, end: 20090501
  3. FUROSEMIDE [Concomitant]
     Indication: OEDEMA
     Dosage: LONGSTANDING
  4. INSULIN [Concomitant]
     Indication: DIABETES MELLITUS
     Dosage: LONGSTANDING

REACTIONS (2)
  - PENIS CARCINOMA [None]
  - METASTATIC SQUAMOUS CELL CARCINOMA [None]
